FAERS Safety Report 10711185 (Version 8)
Quarter: 2017Q2

REPORT INFORMATION
  Report Type: Report from Study
  Country: US (occurrence: US)
  Receive Date: 20150114
  Receipt Date: 20170601
  Transmission Date: 20170829
  Serious: Yes (Death, Hospitalization, Other)
  Sender: FDA-Public Use
  Company Number: US-SA-2014SA103423

PATIENT
  Age: 56 Year
  Sex: Female

DRUGS (7)
  1. AUBAGIO [Suspect]
     Active Substance: TERIFLUNOMIDE
     Indication: MULTIPLE SCLEROSIS
     Route: 065
     Dates: start: 20140901, end: 2016
  2. PROPANOLOL [Concomitant]
     Active Substance: PROPRANOLOL HYDROCHLORIDE
     Route: 065
  3. LITHIUM. [Concomitant]
     Active Substance: LITHIUM
     Route: 065
  4. PEROXIDE [Concomitant]
     Active Substance: HYDROGEN PEROXIDE
     Route: 065
  5. DIVALPROEX SODIUM. [Concomitant]
     Active Substance: DIVALPROEX SODIUM
     Route: 065
  6. AUBAGIO [Suspect]
     Active Substance: TERIFLUNOMIDE
     Indication: MULTIPLE SCLEROSIS
     Dosage: DOSE: 7 (UNITS UNSPECIFIED)
     Route: 048
     Dates: start: 20140729
  7. AUBAGIO [Suspect]
     Active Substance: TERIFLUNOMIDE
     Indication: MULTIPLE SCLEROSIS
     Route: 048
     Dates: end: 20140826

REACTIONS (28)
  - Malaise [Unknown]
  - Contusion [Unknown]
  - Incontinence [Recovered/Resolved]
  - Tremor [Unknown]
  - Hip arthroplasty [Unknown]
  - Herpes zoster [Not Recovered/Not Resolved]
  - Sensory loss [Unknown]
  - Gait disturbance [Recovering/Resolving]
  - Abdominal pain lower [Not Recovered/Not Resolved]
  - Fatigue [Unknown]
  - Speech disorder [Unknown]
  - Balance disorder [Recovering/Resolving]
  - Muscular weakness [Unknown]
  - Hypoaesthesia [Unknown]
  - Death [Fatal]
  - Temperature intolerance [Not Recovered/Not Resolved]
  - Impaired driving ability [Unknown]
  - General physical health deterioration [Unknown]
  - Depression [Unknown]
  - Skin disorder [Unknown]
  - Fall [Unknown]
  - Loss of personal independence in daily activities [Unknown]
  - Limb discomfort [Unknown]
  - Foot deformity [Unknown]
  - Drug dose omission [Unknown]
  - Hunger [Unknown]
  - Burning sensation [Not Recovered/Not Resolved]
  - Hypokinesia [Unknown]

NARRATIVE: CASE EVENT DATE: 20140811
